FAERS Safety Report 13460788 (Version 1)
Quarter: 2017Q2

REPORT INFORMATION
  Report Type: Spontaneous
  Country: US (occurrence: US)
  Receive Date: 20170420
  Receipt Date: 20170420
  Transmission Date: 20170830
  Serious: No
  Sender: FDA-Public Use
  Company Number: ALCN2017US002805

PATIENT
  Age: 79 Year
  Sex: Male

DRUGS (2)
  1. VIGAMOX [Concomitant]
     Active Substance: MOXIFLOXACIN HYDROCHLORIDE
     Indication: PROPHYLAXIS
     Route: 065
  2. PREDNISOLONE SCHEIN [Suspect]
     Active Substance: PREDNISOLONE
     Indication: CATARACT OPERATION
     Dosage: UNK
     Route: 047
     Dates: start: 20170220

REACTIONS (1)
  - Eye pain [Not Recovered/Not Resolved]

NARRATIVE: CASE EVENT DATE: 20170413
